FAERS Safety Report 5239677-X (Version None)
Quarter: 2007Q1

REPORT INFORMATION
  Report Type: 
  Country: None (occurrence: None)
  Receive Date: 20070216
  Receipt Date: 20070206
  Transmission Date: 20070707
  Serious: Yes (Hospitalization, Disabling)
  Sender: FDA-Public Use
  Company Number: FR-ROCHE-469950

PATIENT
  Age: 39 Year
  Sex: Female
  Weight: 55 kg

DRUGS (7)
  1. ROFERON-A [Suspect]
     Dosage: FORM REPORTED AS INJECTABLE SOLUTION.
     Route: 058
     Dates: start: 20021001, end: 20040601
  2. LEVONORGESTREL AND ETHINYL ESTRADIOL [Concomitant]
     Indication: CONTRACEPTION
  3. PROZAC [Concomitant]
     Dosage: DOSAGE: ONE DOSE AND A HALF PER DAY.
  4. LEXOMIL [Concomitant]
  5. NORDAZ [Concomitant]
     Dosage: DOSAGE: THREE DOSES PER DAY.
  6. TARDYFERON [Concomitant]
     Dosage: DOSAGE: ONE DOSE PER DAY.
  7. METEOSPASMYL [Concomitant]
     Dosage: REPORTED AS METEOSPASMINE.

REACTIONS (6)
  - CYANOSIS [None]
  - HYPOTHYROIDISM [None]
  - PERIPHERAL VASCULAR DISORDER [None]
  - RAYNAUD'S PHENOMENON [None]
  - SCLERODERMA [None]
  - WEIGHT DECREASED [None]
